FAERS Safety Report 10150110 (Version 2)
Quarter: 2014Q2

REPORT INFORMATION
  Report Type: Report from Study
  Country: US (occurrence: US)
  Receive Date: 20140502
  Receipt Date: 20140601
  Transmission Date: 20141212
  Serious: Yes (Hospitalization, Other)
  Sender: FDA-Public Use
  Company Number: US-BRISTOL-MYERS SQUIBB COMPANY-20659488

PATIENT
  Age: 59 Year
  Sex: Male
  Weight: 94.7 kg

DRUGS (1)
  1. IPILIMUMAB [Suspect]
     Indication: MALIGNANT MELANOMA
     Dosage: MAINTAINANCE: 10MG/KG/12WEEKS ?TOTAL DOSE ADMINISTERED THIS COURSE:1075MG?RECENT DOSE ON: 14MAR14.
     Route: 042
     Dates: start: 20140221

REACTIONS (7)
  - Gastrointestinal perforation [Recovering/Resolving]
  - Peritonitis [Recovering/Resolving]
  - Peritoneal necrosis [Recovering/Resolving]
  - Sepsis [Recovering/Resolving]
  - Renal failure acute [Not Recovered/Not Resolved]
  - Abdominal distension [Recovering/Resolving]
  - Atrial fibrillation [Not Recovered/Not Resolved]
